FAERS Safety Report 8023938-5 (Version None)
Quarter: 2012Q1

REPORT INFORMATION
  Report Type: 
  Country: None (occurrence: None)
  Receive Date: 20120105
  Receipt Date: 20120103
  Transmission Date: 20120608
  Serious: Yes (Other)
  Sender: FDA-Public Use
  Company Number: NO-PFIZER INC-2012000570

PATIENT
  Age: 56 Year
  Sex: Male

DRUGS (1)
  1. NEURONTIN [Suspect]
     Indication: PERIODIC LIMB MOVEMENT DISORDER
     Dosage: UNK

REACTIONS (1)
  - ANAEMIA MEGALOBLASTIC [None]
